FAERS Safety Report 4290155-4 (Version None)
Quarter: 2004Q1

REPORT INFORMATION
  Report Type: 
  Country: None (occurrence: None)
  Receive Date: 20040206
  Receipt Date: 20040126
  Transmission Date: 20041129
  Serious: Yes (Death, Life-Threatening, Hospitalization, Disabling)
  Sender: FDA-Public Use
  Company Number: 167-20785-04010753

PATIENT
  Age: 37 Year
  Sex: Female

DRUGS (8)
  1. THALIDOMIDE [Suspect]
     Indication: MENINGITIS TUBERCULOUS
     Dosage: 150 MG, DAILY, ORAL
     Route: 048
  2. CIPROFLOXACIN [Suspect]
     Indication: MENINGITIS TUBERCULOUS
  3. CYCLOSPORINE [Suspect]
     Indication: MENINGITIS TUBERCULOUS
  4. PREDNISOLONE [Suspect]
     Indication: MENINGITIS TUBERCULOUS
     Dosage: 10-80 MG, QD, ORAL
     Route: 048
  5. RIFAMPICIN [Suspect]
     Indication: MENINGITIS TUBERCULOUS
  6. ISONIAZID [Suspect]
     Indication: MENINGITIS TUBERCULOUS
  7. PYRAZINAMIDE [Suspect]
     Indication: MENINGITIS TUBERCULOUS
  8. ETHAMBUTOL HCL [Suspect]
     Indication: MENINGITIS TUBERCULOUS

REACTIONS (4)
  - CARDIOVASCULAR DISORDER [None]
  - CEREBRAL HAEMORRHAGE [None]
  - CEREBRAL INFARCTION [None]
  - HEMIPLEGIA [None]
